FAERS Safety Report 22997670 (Version 2)
Quarter: 2023Q4

REPORT INFORMATION
  Report Type: Spontaneous
  Country: BR (occurrence: BR)
  Receive Date: 20230928
  Receipt Date: 20231030
  Transmission Date: 20240109
  Serious: Yes (Hospitalization, Other)
  Sender: FDA-Public Use
  Company Number: BR-AstraZeneca-2023A214847

PATIENT

DRUGS (10)
  1. METOPROLOL SUCCINATE [Suspect]
     Active Substance: METOPROLOL SUCCINATE
     Indication: Product used for unknown indication
     Dosage: HALF AT BREAKFAST AND HALF AT NIGHT
     Route: 048
  2. DAPAGLIFLOZIN [Suspect]
     Active Substance: DAPAGLIFLOZIN
     Indication: Renal disorder
     Dosage: 1 TABLET AT BREAKFAST
     Route: 048
     Dates: start: 2023
  3. AMIODARONE HYDROCHLORIDE [Concomitant]
     Active Substance: AMIODARONE HYDROCHLORIDE
     Indication: Product used for unknown indication
     Dosage: DURING THE WEEK
  4. PANTOPRAZOLE [Concomitant]
     Active Substance: PANTOPRAZOLE
     Indication: Product used for unknown indication
     Dosage: 1 TABLET IN THE MORNING AND 1 TABLET AT NIGHT
  5. ASPIRIN\DIHYDROXYALUMINUM AMINOACETATE ANHYDROUS\MAGNESIUM CARBONATE [Concomitant]
     Active Substance: ASPIRIN\DIHYDROXYALUMINUM AMINOACETATE ANHYDROUS\MAGNESIUM CARBONATE
     Indication: Product used for unknown indication
     Dosage: AT LUNCH
  6. ADENOSINE, ALLOPURINOL, GLUTATHIONE, MAGNESIUM SULFATE, POTASSIUM PHOS [Concomitant]
     Indication: Product used for unknown indication
     Dosage: AT LUNCH
  7. ROSUVASTATIN [Concomitant]
     Active Substance: ROSUVASTATIN
     Indication: Product used for unknown indication
     Dosage: 1 TABLET AT DINNER
  8. TADALAFIL [Concomitant]
     Active Substance: TADALAFIL
     Indication: Product used for unknown indication
     Dosage: A TABLET
  9. TRESIBA [Concomitant]
     Active Substance: INSULIN DEGLUDEC
     Indication: Product used for unknown indication
     Dosage: 15 MILLIGRAM, QD
  10. INSULIN NOS [Concomitant]
     Active Substance: INSULIN NOS
     Indication: Product used for unknown indication
     Dosage: GLUCOSE MEASUREMENT DURING BREAKFAST, LUNCH OR DINNER, USE 3MG,BUT CAN TAKE 1 MG OR 4 MG OR MORE ...

REACTIONS (12)
  - Renal impairment [Unknown]
  - Heart rate decreased [Unknown]
  - Groin infection [Not Recovered/Not Resolved]
  - Weight decreased [Not Recovered/Not Resolved]
  - Penile infection [Not Recovered/Not Resolved]
  - Fluid retention [Unknown]
  - Polyuria [Not Recovered/Not Resolved]
  - Pollakiuria [Unknown]
  - COVID-19 [Not Recovered/Not Resolved]
  - Weight increased [Unknown]
  - Fatigue [Unknown]
  - Medication error [Unknown]

NARRATIVE: CASE EVENT DATE: 20230101
